FAERS Safety Report 10457057 (Version 1)
Quarter: 2014Q3

REPORT INFORMATION
  Report Type: Spontaneous
  Country: US (occurrence: US)
  Receive Date: 20140916
  Receipt Date: 20140916
  Transmission Date: 20150326
  Serious: Yes (Hospitalization, Other)
  Sender: FDA-Public Use
  Company Number: US-ABBVIE-14P-163-1281882-00

PATIENT
  Age: 53 Year
  Sex: Male

DRUGS (1)
  1. ANDROGEL [Suspect]
     Active Substance: TESTOSTERONE
     Indication: BLOOD TESTOSTERONE DECREASED
     Route: 065
     Dates: start: 20060927, end: 201207

REACTIONS (12)
  - Social problem [Unknown]
  - Anxiety [Unknown]
  - Lung disorder [Unknown]
  - Anhedonia [Unknown]
  - Fear [Unknown]
  - Economic problem [Unknown]
  - Pulmonary embolism [Unknown]
  - Nervous system disorder [Unknown]
  - Pain [Unknown]
  - Pulmonary embolism [Unknown]
  - Transient ischaemic attack [Unknown]
  - Impaired work ability [Unknown]

NARRATIVE: CASE EVENT DATE: 20100914
